FAERS Safety Report 8521460-0 (Version None)
Quarter: 2012Q3

REPORT INFORMATION
  Report Type: 
  Country: None (occurrence: None)
  Receive Date: 20120719
  Receipt Date: 20120713
  Transmission Date: 20120928
  Serious: Yes (Life-Threatening, Congenital Anomaly)
  Sender: FDA-Public Use
  Company Number: DE-TEVA-348471GER

PATIENT
  Age: 0 Year
  Sex: Male
  Weight: 0.33 kg

DRUGS (4)
  1. VENLAFAXINE [Suspect]
     Route: 064
  2. OMEPRAZOLE [Concomitant]
     Route: 064
  3. FEMIBION [Concomitant]
     Route: 064
  4. LEVOTHYROXINE SODIUM [Concomitant]
     Route: 064

REACTIONS (1)
  - POTTER'S SYNDROME [None]
